FAERS Safety Report 8618006-5 (Version None)
Quarter: 2012Q3

REPORT INFORMATION
  Report Type: 
  Country: None (occurrence: None)
  Receive Date: 20120824
  Receipt Date: 20120130
  Transmission Date: 20120928
  Serious: No
  Sender: FDA-Public Use
  Company Number: US-ASTRAZENECA-2012SE06314

PATIENT
  Age: 65 Year
  Sex: Female
  Weight: 40.8 kg

DRUGS (5)
  1. THYROID MEDICINES [Concomitant]
     Indication: THYROID DISORDER
  2. METFORMIN HCL [Concomitant]
  3. PRAVASTATIN [Concomitant]
     Indication: BLOOD CHOLESTEROL INCREASED
  4. SYMBICORT [Suspect]
     Indication: ASTHMA
     Dosage: 160/4.5 MCG, 2 PUFFS, BID
     Route: 055
  5. SYMBICORT [Suspect]
     Dosage: 160/4.5 MCG, 2 PUFFS, ONCE A DAY
     Route: 055

REACTIONS (2)
  - INAPPROPRIATE SCHEDULE OF DRUG ADMINISTRATION [None]
  - DIABETES MELLITUS [None]
